FAERS Safety Report 9047208 (Version 1)
Quarter: 2013Q1

REPORT INFORMATION
  Report Type: Report from Study
  Country: US (occurrence: US)
  Receive Date: 20130130
  Receipt Date: 20130130
  Transmission Date: 20140127
  Serious: No
  Sender: FDA-Public Use
  Company Number: US-ABBOTT-12P-163-0976084-00

PATIENT
  Age: 61 Year
  Sex: Female

DRUGS (8)
  1. HUMIRA [Suspect]
     Indication: RHEUMATOID ARTHRITIS
     Dates: start: 201207
  2. CARVEDILOL [Concomitant]
     Indication: CARDIOVASCULAR DISORDER
     Dosage: 25MG 2 TABLETS DAILY
     Route: 048
  3. METFORMIN [Concomitant]
     Indication: TYPE 2 DIABETES MELLITUS
     Dosage: 500MG TWICE DAILY
     Route: 048
  4. LISINOPRIL [Concomitant]
     Indication: HYPERTENSION
     Dosage: 20/25MG DAILY
     Route: 048
  5. LOVASTATIN [Concomitant]
     Indication: BLOOD CHOLESTEROL
     Dosage: 20MG DAILY
     Route: 048
  6. FOLIC ACID [Concomitant]
     Indication: HAIR DISORDER
     Dosage: 1MG DAILY
     Route: 048
  7. HYDRALAZINE [Concomitant]
     Indication: HYPERTENSION
     Dosage: 25MG 3 TABLETS DAILY
     Route: 048
  8. VITAMINS [Concomitant]
     Indication: PRODUCT USED FOR UNKNOWN INDICATION
     Dosage: DAILY
     Route: 048

REACTIONS (2)
  - Abdominal distension [Recovered/Resolved]
  - Fatigue [Unknown]
